FAERS Safety Report 8310240-7 (Version None)
Quarter: 2012Q2

REPORT INFORMATION
  Report Type: 
  Country: None (occurrence: None)
  Receive Date: 20120425
  Receipt Date: 20120416
  Transmission Date: 20120825
  Serious: Yes (Hospitalization, Other)
  Sender: FDA-Public Use
  Company Number: DE-BRISTOL-MYERS SQUIBB COMPANY-16528531

PATIENT
  Sex: Male

DRUGS (1)
  1. HYDROXYUREA [Suspect]
     Dosage: 1DF:1 CAP TO BEGIN WITH AND THEN ALTERNATED BETW TAKING 1 AND 2 TAB EVERY 8 DAYS
     Dates: end: 20120415

REACTIONS (2)
  - PNEUMONIA [None]
  - PLATELET COUNT INCREASED [None]
